FAERS Safety Report 6897956-4 (Version None)
Quarter: 2010Q3

REPORT INFORMATION
  Report Type: 
  Country: None (occurrence: None)
  Receive Date: 20100802
  Receipt Date: 20070809
  Transmission Date: 20110219
  Serious: No
  Sender: FDA-Public Use
  Company Number: US-PFIZER INC-2007067654

PATIENT
  Sex: Male
  Weight: 68.181 kg

DRUGS (5)
  1. LYRICA [Suspect]
     Indication: SLEEP DISORDER
     Dates: start: 20070801
  2. AMBIEN [Concomitant]
     Indication: SLEEP DISORDER
  3. LUNESTA [Concomitant]
     Indication: SLEEP DISORDER
  4. NEURONTIN [Concomitant]
     Indication: SLEEP DISORDER
  5. NORTRIPTYLINE [Concomitant]
     Indication: SLEEP DISORDER

REACTIONS (1)
  - HEADACHE [None]
